FAERS Safety Report 16328012 (Version 1)
Quarter: 2019Q2

REPORT INFORMATION
  Report Type: Spontaneous
  Country: US (occurrence: US)
  Receive Date: 20190518
  Receipt Date: 20190518
  Transmission Date: 20190711
  Serious: Yes (Other)
  Sender: FDA-Public Use
  Company Number: US-JNJFOC-20190502903

PATIENT
  Age: 12 Year
  Sex: Male

DRUGS (3)
  1. PROZAC [Suspect]
     Active Substance: FLUOXETINE HYDROCHLORIDE
     Indication: PRODUCT USED FOR UNKNOWN INDICATION
     Route: 065
  2. RISPERDAL [Suspect]
     Active Substance: RISPERIDONE
     Indication: PRODUCT USED FOR UNKNOWN INDICATION
     Route: 048
  3. INVEGA [Suspect]
     Active Substance: PALIPERIDONE
     Indication: AGITATION
     Route: 048

REACTIONS (10)
  - Increased appetite [Unknown]
  - Pain in extremity [Unknown]
  - Muscle tightness [Unknown]
  - Off label use [Unknown]
  - Syncope [Unknown]
  - Somnolence [Unknown]
  - Product use in unapproved indication [Unknown]
  - Weight increased [Unknown]
  - Fatigue [Unknown]
  - Muscle twitching [Unknown]

NARRATIVE: CASE EVENT DATE: 20070924
